FAERS Safety Report 9571032 (Version 1)
Quarter: 2013Q3

REPORT INFORMATION
  Report Type: Spontaneous
  Country: US (occurrence: None)
  Receive Date: 20130927
  Receipt Date: 20130927
  Transmission Date: 20140515
  Serious: Yes (Other)
  Sender: FDA-Public Use
  Company Number: None

PATIENT
  Age: 60 Year
  Sex: Male
  Weight: 74.84 kg

DRUGS (12)
  1. MEROPENUM [Suspect]
     Indication: INFECTION
     Route: 042
     Dates: start: 20130719, end: 20130810
  2. INSULIN [Concomitant]
  3. IRON SULFATE [Concomitant]
  4. CLONIDINE [Concomitant]
  5. LABETOLOL [Concomitant]
  6. MINOXIDIL [Concomitant]
  7. NIFEDIPINE [Concomitant]
  8. PEPCID [Concomitant]
  9. TYLENOL [Concomitant]
  10. LOVENOX [Concomitant]
  11. SENNA [Concomitant]
  12. PERCOCET [Concomitant]

REACTIONS (5)
  - Ocular icterus [None]
  - Blood bilirubin increased [None]
  - Blood alkaline phosphatase increased [None]
  - Alanine aminotransferase increased [None]
  - Aspartate aminotransferase increased [None]
